FAERS Safety Report 11794265 (Version 2)
Quarter: 2015Q4

REPORT INFORMATION
  Report Type: Report from Study
  Country: US (occurrence: US)
  Receive Date: 20151202
  Receipt Date: 20151208
  Transmission Date: 20160305
  Serious: Yes (Death, Other)
  Sender: FDA-Public Use
  Company Number: US-AMGEN-USASL2015125773

PATIENT
  Age: 34 Year
  Sex: Male

DRUGS (1)
  1. BLINCYTO [Suspect]
     Active Substance: BLINATUMOMAB
     Indication: ACUTE LYMPHOCYTIC LEUKAEMIA RECURRENT
     Dosage: 28 MUG, QD
     Route: 065
     Dates: start: 20151022, end: 20151119

REACTIONS (3)
  - Death [Fatal]
  - Fungal sepsis [Unknown]
  - Sinusitis fungal [Unknown]

NARRATIVE: CASE EVENT DATE: 20151123
